FAERS Safety Report 9254835 (Version 1)
Quarter: 2013Q1

REPORT INFORMATION
  Report Type: Spontaneous
  Country: US (occurrence: None)
  Receive Date: 20121212
  Receipt Date: 20121212
  Transmission Date: 20140127
  Serious: No
  Sender: FDA-Public Use
  Company Number: 1209USA012013

PATIENT
  Age: 45 Year
  Sex: Female

DRUGS (3)
  1. PEGINTRON [Suspect]
     Indication: HEPATITIS C
     Dates: start: 20111028, end: 20120921
  2. REBETOL (RIBAVIRIN) [Suspect]
     Indication: HEPATITIS C
     Dates: start: 20111028, end: 20120921
  3. VICTRELIS [Suspect]
     Indication: HEPATITIS C
     Dates: start: 20111125, end: 20120921

REACTIONS (4)
  - White blood cell count decreased [None]
  - Asthenia [None]
  - Fatigue [None]
  - Dizziness [None]
